FAERS Safety Report 8830868 (Version 1)
Quarter: 2012Q4

REPORT INFORMATION
  Report Type: 
  Country: US (occurrence: US)
  Receive Date: 20121008
  Receipt Date: 20121008
  Transmission Date: 20130627
  Serious: Yes (Hospitalization)
  Sender: FDA-Public Use
  Company Number: US-BAYER-2012-102987

PATIENT
  Age: 40 Year
  Sex: Female
  Weight: 95.24 kg

DRUGS (15)
  1. YASMIN [Suspect]
     Indication: PREMENSTRUAL SYNDROME
  2. DHEA [Concomitant]
     Dosage: 25 mg, daily
     Route: 048
  3. ALBUTEROL [Concomitant]
     Route: 045
  4. CEPHALEXIN [Concomitant]
     Dosage: 500 mg, UNK
  5. MYTUSSIN DAC [Concomitant]
  6. CHERATUSSIN AC [Concomitant]
  7. TRAZODONE [Concomitant]
     Dosage: 50 mg, HS
     Route: 048
  8. SYNTHROID [Concomitant]
     Dosage: 75 mcg/24hr, UNK
     Route: 048
  9. CELEXA [Concomitant]
     Dosage: 60 mg,daily
     Route: 048
  10. LAMICTAL [Concomitant]
     Dosage: 25 mg, Two pills daily
     Route: 048
  11. COUMADIN [Concomitant]
     Indication: PULMONARY EMBOLISM
  12. COUMADIN [Concomitant]
     Indication: DEEP VEIN THROMBOSIS
  13. XANAX [Concomitant]
  14. VICODIN [Concomitant]
  15. FRAGMIN [Concomitant]
     Dosage: 10,000 units every 12 hours.
     Route: 058

REACTIONS (2)
  - Pulmonary embolism [Recovering/Resolving]
  - Deep vein thrombosis [Recovered/Resolved]
